FAERS Safety Report 8817061 (Version 1)
Quarter: 2012Q4

REPORT INFORMATION
  Report Type: Spontaneous
  Country: US (occurrence: None)
  Receive Date: 20121003
  Receipt Date: 20121003
  Transmission Date: 20130627
  Serious: Yes (Hospitalization)
  Sender: FDA-Public Use
  Company Number: None

PATIENT
  Age: 65 Year
  Sex: Male
  Weight: 58.97 kg

DRUGS (1)
  1. RECLAST [Suspect]
     Indication: OSTEOPOROSIS
     Dates: start: 20120807, end: 20120807

REACTIONS (8)
  - Dyspnoea [None]
  - Chest pain [None]
  - Bone pain [None]
  - Inadequate analgesia [None]
  - Pain [None]
  - Gait disturbance [None]
  - Gait disturbance [None]
  - Asthenia [None]
